FAERS Safety Report 4375094-2 (Version None)
Quarter: 2004Q2

REPORT INFORMATION
  Report Type: 
  Country: None (occurrence: None)
  Receive Date: 20040604
  Receipt Date: 20040521
  Transmission Date: 20050107
  Serious: Yes (Death)
  Sender: FDA-Public Use
  Company Number: 206785

PATIENT
  Age: 65 Year
  Sex: Male

DRUGS (5)
  1. MABTHERA(RITUXIMAB) CONC FOR SOLUTION FOR INFUSION [Suspect]
     Indication: DIFFUSE LARGE B-CELL LYMPHOMA
     Dosage: 700 MG, SINGLE, INTRAVENOUS
     Route: 042
     Dates: start: 20040430, end: 20040430
  2. CYCLOPHOSPHAMIDE [Suspect]
     Indication: DIFFUSE LARGE B-CELL LYMPHOMA
     Dosage: 1500 MG, SINGLE, INTRAVENOUS
     Route: 042
     Dates: start: 20040430, end: 20040430
  3. ETOPOSIDE [Suspect]
     Indication: DIFFUSE LARGE B-CELL LYMPHOMA
     Dosage: 200 MG, SINGLE, INTRAVENOUS
     Route: 042
     Dates: start: 20040430, end: 20040430
  4. ETOPOSIDE [Suspect]
     Indication: DIFFUSE LARGE B-CELL LYMPHOMA
     Dosage: 400 MG,
     Dates: start: 20040501, end: 20040502
  5. VINCRISTINE [Suspect]
     Indication: DIFFUSE LARGE B-CELL LYMPHOMA
     Dosage: 2 MG, SINGLE, INTRAVENOUS
     Route: 042
     Dates: start: 20040430, end: 20040430

REACTIONS (2)
  - PULMONARY EMBOLISM [None]
  - SEPTIC SHOCK [None]
